FAERS Safety Report 14207868 (Version 2)
Quarter: 2018Q1

REPORT INFORMATION
  Report Type: Report from Study
  Country: DK (occurrence: DK)
  Receive Date: 20171121
  Receipt Date: 20180126
  Transmission Date: 20180508
  Serious: Yes (Life-Threatening, Hospitalization)
  Sender: FDA-Public Use
  Company Number: DK-ROCHE-2021932

PATIENT
  Age: 73 Year
  Sex: Male
  Weight: 68 kg

DRUGS (1)
  1. ATEZOLIZUMAB. [Suspect]
     Active Substance: ATEZOLIZUMAB
     Indication: TRANSITIONAL CELL CARCINOMA
     Route: 042
     Dates: start: 20170405, end: 20170405

REACTIONS (6)
  - Meningism [Recovered/Resolved]
  - Hypotension [Recovered/Resolved]
  - Depressed level of consciousness [Recovered/Resolved]
  - Sepsis [Unknown]
  - Pyrexia [Recovered/Resolved]
  - Disease progression [Unknown]

NARRATIVE: CASE EVENT DATE: 20170418
